FAERS Safety Report 5458580-3 (Version None)
Quarter: 2007Q3

REPORT INFORMATION
  Report Type: 
  Country: None (occurrence: None)
  Receive Date: 20070919
  Receipt Date: 20070508
  Transmission Date: 20080115
  Serious: Yes (Hospitalization)
  Sender: FDA-Public Use
  Company Number: US-ASTRAZENECA-2007UW06856

PATIENT
  Age: 50 Year
  Sex: Male

DRUGS (6)
  1. SEROQUEL [Suspect]
     Indication: MANIA
     Route: 048
     Dates: start: 20070101, end: 20070101
  2. SEROQUEL [Suspect]
     Indication: PSYCHOTIC DISORDER
     Route: 048
     Dates: start: 20070101, end: 20070101
  3. SEROQUEL [Suspect]
     Indication: DEPRESSED MOOD
     Route: 048
     Dates: start: 20070101, end: 20070101
  4. DEPAKOTE ER [Concomitant]
     Indication: AFFECTIVE DISORDER
     Dates: start: 20070101
  5. DEPAKOTE ER [Concomitant]
     Route: 048
     Dates: start: 20070101
  6. ALCOHOL [Concomitant]

REACTIONS (2)
  - AGITATION [None]
  - HALLUCINATION, AUDITORY [None]
